FAERS Safety Report 7964427-3 (Version None)
Quarter: 2011Q4

REPORT INFORMATION
  Report Type: 
  Country: None (occurrence: None)
  Receive Date: 20111208
  Receipt Date: 20111205
  Transmission Date: 20120403
  Serious: Yes (Other)
  Sender: FDA-Public Use
  Company Number: GB-PFIZER INC-2011277810

PATIENT
  Age: 51 Year
  Sex: Male

DRUGS (5)
  1. ETANERCEPT [Concomitant]
     Indication: RHEUMATOID ARTHRITIS
  2. ROSUVASTATIN [Suspect]
     Indication: BLOOD CHOLESTEROL
  3. SIMVASTATIN [Suspect]
     Indication: BLOOD CHOLESTEROL
  4. ATORVASTATIN CALCIUM [Suspect]
     Indication: BLOOD CHOLESTEROL
  5. NITROGLYCERIN [Concomitant]
     Indication: ANGINA PECTORIS

REACTIONS (1)
  - RHEUMATOID ARTHRITIS [None]
